FAERS Safety Report 6841972-5 (Version None)
Quarter: 2010Q3

REPORT INFORMATION
  Report Type: 
  Country: None (occurrence: None)
  Receive Date: 20100714
  Receipt Date: 20100709
  Transmission Date: 20110219
  Serious: Yes (Other)
  Sender: FDA-Public Use
  Company Number: US-AMGEN-QUU419404

PATIENT
  Sex: Male
  Weight: 85.8 kg

DRUGS (14)
  1. NPLATE [Suspect]
     Indication: IDIOPATHIC THROMBOCYTOPENIC PURPURA
  2. ACTOS [Concomitant]
     Route: 048
  3. GLIMEPIRIDE [Concomitant]
     Route: 048
  4. JANUVIA [Concomitant]
     Route: 048
  5. VYTORIN [Concomitant]
  6. FLOMAX [Concomitant]
  7. SERTRALINE HCL [Concomitant]
     Route: 048
  8. COLACE [Concomitant]
  9. LISINOPRIL [Concomitant]
  10. MS CONTIN [Concomitant]
     Route: 048
  11. BETHANECHOL [Concomitant]
  12. VICODIN [Concomitant]
  13. LANTUS [Concomitant]
  14. LORATADINE [Concomitant]

REACTIONS (6)
  - CERVICAL SPINAL STENOSIS [None]
  - INTERVERTEBRAL DISC DEGENERATION [None]
  - PAIN [None]
  - PLATELET COUNT DECREASED [None]
  - PNEUMONIA [None]
  - THERAPEUTIC RESPONSE DECREASED [None]
